FAERS Safety Report 7258564-9 (Version None)
Quarter: 2011Q1

REPORT INFORMATION
  Report Type: 
  Country: None (occurrence: None)
  Receive Date: 20110129
  Receipt Date: 20100512
  Transmission Date: 20110831
  Serious: No
  Sender: FDA-Public Use
  Company Number: US-ABBOTT-10P-163-0645476-00

PATIENT
  Sex: Female
  Weight: 67.192 kg

DRUGS (1)
  1. HUMIRA [Suspect]
     Indication: RHEUMATOID ARTHRITIS
     Dates: start: 20090801, end: 20100308

REACTIONS (7)
  - JOINT SWELLING [None]
  - ASTHENIA [None]
  - SYNCOPE [None]
  - NAUSEA [None]
  - HYPERHIDROSIS [None]
  - JOINT CREPITATION [None]
  - FATIGUE [None]
